FAERS Safety Report 11499603 (Version 2)
Quarter: 2015Q4

REPORT INFORMATION
  Report Type: Spontaneous
  Country: US (occurrence: US)
  Receive Date: 20150914
  Receipt Date: 20151005
  Transmission Date: 20160304
  Serious: Yes (Hospitalization, Other)
  Sender: FDA-Public Use
  Company Number: US-ROCHE-ITM201504IM014024

PATIENT
  Age: 86 Year
  Sex: Female
  Weight: 71.73 kg

DRUGS (2)
  1. ESBRIET [Suspect]
     Active Substance: PIRFENIDONE
     Dosage: 2 CAPSULES, THRICE A DAY
     Route: 048
     Dates: start: 20150428
  2. ESBRIET [Suspect]
     Active Substance: PIRFENIDONE
     Indication: IDIOPATHIC PULMONARY FIBROSIS
     Route: 048
     Dates: start: 20150428

REACTIONS (5)
  - Fatigue [Unknown]
  - Hypertension [Recovered/Resolved]
  - Hepatic enzyme increased [Unknown]
  - Renal impairment [Unknown]
  - Upper limb fracture [Unknown]

NARRATIVE: CASE EVENT DATE: 20150811
